FAERS Safety Report 12508874 (Version 2)
Quarter: 2016Q3

REPORT INFORMATION
  Report Type: Spontaneous
  Country: US (occurrence: US)
  Receive Date: 20160629
  Receipt Date: 20160719
  Transmission Date: 20161109
  Serious: No
  Sender: FDA-Public Use
  Company Number: US-SHIRE-US201606904

PATIENT
  Age: 33 Year
  Sex: Male
  Weight: 88.44 kg

DRUGS (3)
  1. VYVANSE [Suspect]
     Active Substance: LISDEXAMFETAMINE DIMESYLATE
     Dosage: UNK(OPENS 30 MG CAPSULE TAKES UNKNOWN MG FROM HALF OF CONTENTS AT 8 AM AND AT 2PM), 2X/DAY:BID
     Route: 048
     Dates: start: 201510, end: 201605
  2. VYVANSE [Suspect]
     Active Substance: LISDEXAMFETAMINE DIMESYLATE
     Indication: ATTENTION DEFICIT/HYPERACTIVITY DISORDER
     Dosage: 30 MG, 1X/DAY:QD
     Route: 048
     Dates: start: 201509, end: 201510
  3. VYVANSE [Suspect]
     Active Substance: LISDEXAMFETAMINE DIMESYLATE
     Dosage: UNK (OPENS 50 MG CAPSULE TAKES UNKNOWN MG FROM HALF OF THE CONTENTS AT 8 AM AND AT 2 PM),2X/DAY:
     Route: 048
     Dates: start: 20160601

REACTIONS (6)
  - Incorrect dose administered [Not Recovered/Not Resolved]
  - Drug effect increased [Recovered/Resolved]
  - Inappropriate schedule of drug administration [Not Recovered/Not Resolved]
  - Drug effect decreased [Recovered/Resolved]
  - Anxiety [Recovered/Resolved]
  - Wrong technique in product usage process [Not Recovered/Not Resolved]

NARRATIVE: CASE EVENT DATE: 201510
